FAERS Safety Report 9334738 (Version 1)
Quarter: 2013Q2

REPORT INFORMATION
  Report Type: Spontaneous
  Country: US (occurrence: US)
  Receive Date: 20130606
  Receipt Date: 20130606
  Transmission Date: 20140414
  Serious: No
  Sender: FDA-Public Use
  Company Number: US-AMGEN-USASP2013014521

PATIENT
  Age: 66 Year
  Sex: Female

DRUGS (6)
  1. PROLIA [Suspect]
     Indication: OSTEOPOROSIS POSTMENOPAUSAL
     Dosage: UNK
     Dates: start: 201109
  2. PROLIA [Suspect]
  3. VITAMIN D                          /00107901/ [Concomitant]
     Dosage: 1300 IU, UNK
  4. CALCIUM [Concomitant]
     Dosage: 500 MG, UNK
  5. BABY ASPIRIN [Concomitant]
     Dosage: 81 MG, UNK
  6. TYLENOL ARTHRITIS [Concomitant]
     Dosage: UNK

REACTIONS (3)
  - Arthralgia [Not Recovered/Not Resolved]
  - Myalgia [Not Recovered/Not Resolved]
  - Pain in extremity [Not Recovered/Not Resolved]
